FAERS Safety Report 15469637 (Version 2)
Quarter: 2018Q4

REPORT INFORMATION
  Report Type: Spontaneous
  Country: US (occurrence: US)
  Receive Date: 20181005
  Receipt Date: 20181210
  Transmission Date: 20190205
  Serious: No
  Sender: FDA-Public Use
  Company Number: US-SA-2018SA273581

PATIENT
  Age: 64 Year
  Sex: Male

DRUGS (9)
  1. METOPROLOL SUCCINATE. [Concomitant]
     Active Substance: METOPROLOL SUCCINATE
  2. PRALUENT [Suspect]
     Active Substance: ALIROCUMAB
     Indication: BLOOD CHOLESTEROL
  3. CLOPIDOGREL [Concomitant]
     Active Substance: CLOPIDOGREL BISULFATE
  4. RAMIPRIL. [Concomitant]
     Active Substance: RAMIPRIL
  5. FLUCONAZOLE. [Concomitant]
     Active Substance: FLUCONAZOLE
  6. TOPROL XL [Concomitant]
     Active Substance: METOPROLOL SUCCINATE
  7. FENOFIBRATE. [Concomitant]
     Active Substance: FENOFIBRATE
  8. PRALUENT [Suspect]
     Active Substance: ALIROCUMAB
     Indication: TYPE V HYPERLIPIDAEMIA
     Dosage: 150 MG, QM
     Route: 058
     Dates: start: 20180826, end: 20180925
  9. PRALUENT [Suspect]
     Active Substance: ALIROCUMAB
     Indication: CARDIAC DISORDER

REACTIONS (4)
  - Drug hypersensitivity [Unknown]
  - Rash [Recovered/Resolved]
  - Product use issue [Unknown]
  - Pharyngitis streptococcal [Unknown]

NARRATIVE: CASE EVENT DATE: 2018
